FAERS Safety Report 10412581 (Version 2)
Quarter: 2014Q4

REPORT INFORMATION
  Report Type: Spontaneous
  Country: US (occurrence: None)
  Receive Date: 20140604
  Receipt Date: 20141010
  Transmission Date: 20150528
  Serious: Yes (Hospitalization)
  Sender: FDA-Public Use
  Company Number: 163-POMAL-14033809

PATIENT
  Age: 72 Year
  Sex: Male

DRUGS (1)
  1. POMALYST [Suspect]
     Active Substance: POMALIDOMIDE
     Indication: PLASMA CELL MYELOMA
     Dosage: 21 IN 28 D
     Route: 048
     Dates: start: 20140304, end: 20140314

REACTIONS (6)
  - Full blood count decreased [None]
  - Blood creatinine increased [None]
  - Red blood cell count decreased [None]
  - Dehydration [None]
  - Blood calcium increased [None]
  - Haemoglobin decreased [None]

NARRATIVE: CASE EVENT DATE: 20140314
